FAERS Safety Report 5777546-7 (Version None)
Quarter: 2008Q2

REPORT INFORMATION
  Report Type: 
  Country: None (occurrence: None)
  Receive Date: 20080618
  Receipt Date: 20080611
  Transmission Date: 20081010
  Serious: Yes (Hospitalization, Other)
  Sender: FDA-Public Use
  Company Number: US-PFIZER INC-2008049478

PATIENT
  Weight: 86.2 kg

DRUGS (2)
  1. GENOTROPIN [Suspect]
     Indication: HYPOPITUITARISM
     Dosage: FREQ:EVERY DAY
  2. PSYLLIUM HYDROPHILIC MUCILLOID [Concomitant]

REACTIONS (6)
  - ANURIA [None]
  - DEHYDRATION [None]
  - GASTRITIS [None]
  - INFECTION [None]
  - NOCTURIA [None]
  - VOMITING [None]
